FAERS Safety Report 6927411-4 (Version None)
Quarter: 2010Q3

REPORT INFORMATION
  Report Type: 
  Country: None (occurrence: None)
  Receive Date: 20100817
  Receipt Date: 20100811
  Transmission Date: 20110219
  Serious: Yes (Other)
  Sender: FDA-Public Use
  Company Number: US-ASTRAZENECA-2007UW27691

PATIENT
  Age: 44 Year
  Sex: Male
  Weight: 81.6 kg

DRUGS (10)
  1. SEROQUEL [Suspect]
     Indication: ANXIETY
     Route: 048
     Dates: start: 20020706, end: 20061115
  2. SEROQUEL [Suspect]
     Indication: BIPOLAR DISORDER
     Route: 048
     Dates: start: 20020706, end: 20061115
  3. SEROQUEL [Suspect]
     Indication: DEPRESSION
     Route: 048
     Dates: start: 20020706, end: 20061115
  4. SEROQUEL [Suspect]
     Indication: SCHIZOPHRENIA
     Route: 048
     Dates: start: 20020706, end: 20061115
  5. RISPERDAL [Concomitant]
     Indication: BIPOLAR DISORDER
     Dates: start: 19990101, end: 20030101
  6. RISPERDAL [Concomitant]
     Indication: SCHIZOPHRENIA
     Dates: start: 19990101, end: 20030101
  7. ABILIFY [Concomitant]
     Dates: start: 20040101, end: 20050101
  8. GEODON [Concomitant]
     Dosage: 120 MG
     Dates: start: 20060110, end: 20060606
  9. HALDOL [Concomitant]
  10. STELAZINE [Concomitant]
     Dates: start: 19800101, end: 19850101

REACTIONS (7)
  - ARTHROPATHY [None]
  - BLOOD CHOLESTEROL INCREASED [None]
  - DIABETES MELLITUS [None]
  - DIABETES MELLITUS INADEQUATE CONTROL [None]
  - HYPERLIPIDAEMIA [None]
  - RENAL DISORDER [None]
  - TYPE 2 DIABETES MELLITUS [None]
